APPROVED DRUG PRODUCT: LEVETIRACETAM
Active Ingredient: LEVETIRACETAM
Strength: 500MG
Dosage Form/Route: TABLET;ORAL
Application: A078731 | Product #002
Applicant: MYLAN PHARMACEUTICALS INC
Approved: Feb 10, 2009 | RLD: No | RS: No | Type: DISCN